APPROVED DRUG PRODUCT: DOXORUBICIN HYDROCHLORIDE (LIPOSOMAL)
Active Ingredient: DOXORUBICIN HYDROCHLORIDE
Strength: 20MG/10ML (2MG/ML)
Dosage Form/Route: INJECTABLE, LIPOSOMAL;INJECTION
Application: A208657 | Product #001 | TE Code: AB
Applicant: DR REDDYS LABORATORIES LTD
Approved: May 15, 2017 | RLD: No | RS: No | Type: RX